FAERS Safety Report 11252769 (Version 1)
Quarter: 2015Q3

REPORT INFORMATION
  Report Type: Spontaneous
  Country: US (occurrence: US)
  Receive Date: 20150708
  Receipt Date: 20150708
  Transmission Date: 20151125
  Serious: No
  Sender: FDA-Public Use
  Company Number: US-MALLINCKRODT-T201403409

PATIENT
  Age: 52 Year
  Sex: Female
  Weight: 106.58 kg

DRUGS (5)
  1. OXYCODONE [Suspect]
     Active Substance: OXYCODONE
     Indication: BREAKTHROUGH PAIN
     Dosage: 5 MG, FIVE PER DAY, PRN
     Route: 048
     Dates: start: 20140814
  2. OXYCONTIN [Concomitant]
     Active Substance: OXYCODONE HYDROCHLORIDE
     Indication: PAIN
     Dosage: 15 MG, UNK
  3. FLUOXETINE [Concomitant]
     Active Substance: FLUOXETINE\FLUOXETINE HYDROCHLORIDE
     Indication: DEPRESSION
     Dosage: 60 MG, UNK
  4. BENTYL [Concomitant]
     Active Substance: DICYCLOMINE HYDROCHLORIDE
     Indication: IRRITABLE BOWEL SYNDROME
     Dosage: UNK, PRN
  5. AMITRIPTYLINE [Concomitant]
     Active Substance: AMITRIPTYLINE
     Indication: NEURALGIA
     Dosage: 10 MG, UNK

REACTIONS (8)
  - Tinnitus [Not Recovered/Not Resolved]
  - Pruritus generalised [Not Recovered/Not Resolved]
  - Muscle spasms [Not Recovered/Not Resolved]
  - Ear pain [Not Recovered/Not Resolved]
  - Vision blurred [Not Recovered/Not Resolved]
  - Facial pain [Not Recovered/Not Resolved]
  - Migraine [Not Recovered/Not Resolved]
  - Dyspepsia [Not Recovered/Not Resolved]

NARRATIVE: CASE EVENT DATE: 201408
